FAERS Safety Report 19065117 (Version 3)
Quarter: 2021Q2

REPORT INFORMATION
  Report Type: Report from Study
  Country: None (occurrence: US)
  Receive Date: 20210326
  Receipt Date: 20210406
  Transmission Date: 20210717
  Serious: Yes (Hospitalization)
  Sender: FDA-Public Use
  Company Number: US-ABBVIE-21K-163-3832351-00

PATIENT
  Age: 80 Year
  Sex: Male
  Weight: 77.18 kg

DRUGS (5)
  1. DUOPA [Suspect]
     Active Substance: CARBIDOPA\LEVODOPA
     Route: 050
     Dates: start: 20210217, end: 2021
  2. DUOPA [Suspect]
     Active Substance: CARBIDOPA\LEVODOPA
     Route: 050
     Dates: start: 20210221, end: 20210319
  3. DUOPA [Suspect]
     Active Substance: CARBIDOPA\LEVODOPA
     Route: 050
     Dates: start: 202103
  4. ASPIRIN. [Suspect]
     Active Substance: ASPIRIN
     Indication: CARDIOVASCULAR EVENT PROPHYLAXIS
     Route: 048
  5. DUOPA [Suspect]
     Active Substance: CARBIDOPA\LEVODOPA
     Indication: PARKINSON^S DISEASE
     Dosage: 100 ML, STRENGTH 4.63? 20 MG?UNIT DOSE? 1 CASSETTE
     Route: 050
     Dates: start: 20201124

REACTIONS (8)
  - Small intestinal ulcer haemorrhage [Unknown]
  - Lethargy [Not Recovered/Not Resolved]
  - Small intestinal ulcer perforation [Unknown]
  - Lethargy [Recovered/Resolved]
  - Red blood cell count decreased [Unknown]
  - Weight decreased [Recovering/Resolving]
  - Medication error [Unknown]
  - Asthenia [Unknown]

NARRATIVE: CASE EVENT DATE: 202103
